FAERS Safety Report 7170432-X (Version None)
Quarter: 2010Q4

REPORT INFORMATION
  Report Type: 
  Country: None (occurrence: None)
  Receive Date: 20101217
  Receipt Date: 20101215
  Transmission Date: 20110411
  Serious: Yes (Hospitalization)
  Sender: FDA-Public Use
  Company Number: ES-ABBOTT-08P-144-0444778-00

PATIENT
  Age: 25 Year
  Sex: Female

DRUGS (4)
  1. DEPAKENE [Suspect]
     Indication: EPILEPSY
     Route: 065
  2. DEPAKENE [Interacting]
     Route: 042
  3. MEROPENEM [Interacting]
     Indication: PNEUMONIA
     Route: 065
  4. PHENYTOIN [Concomitant]
     Indication: STATUS EPILEPTICUS
     Route: 065

REACTIONS (3)
  - CONVULSION [None]
  - DRUG INTERACTION [None]
  - DRUG LEVEL DECREASED [None]
